FAERS Safety Report 7401776-1 (Version None)
Quarter: 2011Q2

REPORT INFORMATION
  Report Type: 
  Country: None (occurrence: None)
  Receive Date: 20110408
  Receipt Date: 20110405
  Transmission Date: 20111010
  Serious: No
  Sender: FDA-Public Use
  Company Number: US-PFIZER INC-2011075530

PATIENT
  Sex: Female
  Weight: 61.2 kg

DRUGS (7)
  1. FELODIPINE [Concomitant]
     Indication: HYPERTENSION
     Dosage: UNK
  2. PANTOPRAZOLE [Suspect]
     Indication: HIATUS HERNIA
     Dosage: UNK
     Dates: start: 20110301, end: 20110404
  3. HYDROCHLOROTHIAZIDE [Concomitant]
     Indication: HYPERTENSION
     Dosage: UNK
  4. ATENOLOL [Concomitant]
     Indication: HYPERTENSION
     Dosage: UNK
  5. PROTONIX [Suspect]
     Indication: HIATUS HERNIA
     Dosage: UNK
     Dates: start: 20110404
  6. PROTONIX [Suspect]
     Indication: GASTROOESOPHAGEAL REFLUX DISEASE
  7. PANTOPRAZOLE [Suspect]
     Indication: GASTROOESOPHAGEAL REFLUX DISEASE

REACTIONS (1)
  - GASTROOESOPHAGEAL REFLUX DISEASE [None]
